FAERS Safety Report 24268149 (Version 2)
Quarter: 2024Q3

REPORT INFORMATION
  Report Type: Spontaneous
  Country: US (occurrence: US)
  Receive Date: 20240830
  Receipt Date: 20240911
  Transmission Date: 20241017
  Serious: No
  Sender: BIOGEN
  Company Number: US-BIOGEN-2023BI01191763

PATIENT
  Sex: Male

DRUGS (3)
  1. VUMERITY [Suspect]
     Active Substance: DIROXIMEL FUMARATE
     Indication: Multiple sclerosis
     Dosage: TAKE 2 CAPSULES (462MG) BY MOUTH TWICE DAILY.
     Route: 050
     Dates: start: 20230131
  2. ASPIRIN [Concomitant]
     Active Substance: ASPIRIN
     Route: 050
  3. D-3-5 [Concomitant]
     Route: 050

REACTIONS (6)
  - Product dose omission issue [Unknown]
  - Glycosylated haemoglobin decreased [Not Recovered/Not Resolved]
  - Gastrointestinal disorder [Unknown]
  - White blood cell count decreased [Unknown]
  - Alopecia [Unknown]
  - Flushing [Unknown]
